FAERS Safety Report 5705647-8 (Version None)
Quarter: 2008Q2

REPORT INFORMATION
  Report Type: 
  Country: None (occurrence: None)
  Receive Date: 20080415
  Receipt Date: 20080403
  Transmission Date: 20081010
  Serious: Yes (Hospitalization)
  Sender: FDA-Public Use
  Company Number: GB-TEVA-169638ISR

PATIENT
  Age: 50 Year
  Sex: Male
  Weight: 74 kg

DRUGS (4)
  1. SIMVASTATIN [Suspect]
     Indication: BLOOD CHOLESTEROL INCREASED
     Route: 048
     Dates: start: 19980101, end: 20080312
  2. SIMVASTATIN [Suspect]
     Indication: MYOCARDIAL INFARCTION
     Route: 048
     Dates: start: 19980101, end: 20080312
  3. SIMVASTATIN [Suspect]
     Route: 048
     Dates: start: 19980101, end: 20080312
  4. AMIODARONE [Suspect]
     Dates: start: 20080205

REACTIONS (2)
  - DRUG INTERACTION [None]
  - MUSCULAR WEAKNESS [None]
